FAERS Safety Report 25519443 (Version 1)
Quarter: 2025Q3

REPORT INFORMATION
  Report Type: Spontaneous
  Country: CN (occurrence: CN)
  Receive Date: 20250704
  Receipt Date: 20250704
  Transmission Date: 20251020
  Serious: Yes (Hospitalization, Other)
  Sender: DR REDDYS
  Company Number: None

PATIENT
  Age: 14 Year
  Sex: Male
  Weight: 37.0 kg

DRUGS (5)
  1. OLANZAPINE [Suspect]
     Active Substance: OLANZAPINE
     Indication: Psychotic symptom
     Dosage: 2.5MG,QD
     Route: 048
     Dates: start: 20250524, end: 20250528
  2. OLANZAPINE [Suspect]
     Active Substance: OLANZAPINE
     Dosage: 5MG,QD
     Route: 048
     Dates: start: 20250528, end: 20250609
  3. OLANZAPINE [Suspect]
     Active Substance: OLANZAPINE
     Dosage: 2.5MG,QD
     Route: 048
     Dates: start: 20250603, end: 20250609
  4. FLUVOXAMINE MALEATE [Suspect]
     Active Substance: FLUVOXAMINE MALEATE
     Indication: Antidepressant therapy
     Dosage: 50MG,QD
     Route: 048
     Dates: start: 20250524, end: 20250531
  5. FLUVOXAMINE MALEATE [Suspect]
     Active Substance: FLUVOXAMINE MALEATE
     Dosage: 50MG,BID
     Route: 048
     Dates: start: 20250531, end: 20250610

REACTIONS (1)
  - Drug-induced liver injury [Recovered/Resolved]

NARRATIVE: CASE EVENT DATE: 20250609
